FAERS Safety Report 21094256 (Version 1)
Quarter: 2022Q3

REPORT INFORMATION
  Report Type: Spontaneous
  Country: US (occurrence: US)
  Receive Date: 20220718
  Receipt Date: 20220718
  Transmission Date: 20221026
  Serious: Yes (Other)
  Sender: FDA-Public Use
  Company Number: US-PFIZER INC-PV202200024526

PATIENT
  Age: 70 Year
  Sex: Female

DRUGS (1)
  1. IBRANCE [Suspect]
     Active Substance: PALBOCICLIB
     Dosage: 50 MG, CYCLIC (TAKE 1/2 TABLET (50MG) DAILY FOR 2 WEEKS ON THEN 1 WEEK OFF)

REACTIONS (2)
  - Cytopenia [Unknown]
  - Wrong technique in product usage process [Unknown]
